FAERS Safety Report 5220740-4 (Version None)
Quarter: 2007Q1

REPORT INFORMATION
  Report Type: 
  Country: None (occurrence: None)
  Receive Date: 20070126
  Receipt Date: 20070118
  Transmission Date: 20070707
  Serious: Yes (Death)
  Sender: FDA-Public Use
  Company Number: DE-ROCHE-445041

PATIENT
  Age: 53 Year
  Sex: Male
  Weight: 62 kg

DRUGS (2)
  1. VALCYTE [Suspect]
     Route: 048
     Dates: start: 20041122, end: 20041229
  2. CELLCEPT [Concomitant]
     Dates: start: 20040715, end: 20041004

REACTIONS (3)
  - C-REACTIVE PROTEIN INCREASED [None]
  - GENERAL PHYSICAL HEALTH DETERIORATION [None]
  - MULTI-ORGAN FAILURE [None]
